FAERS Safety Report 10442734 (Version 2)
Quarter: 2014Q3

REPORT INFORMATION
  Report Type: Report from Study
  Country: IL (occurrence: IL)
  Receive Date: 20140909
  Receipt Date: 20140909
  Transmission Date: 20150326
  Serious: Yes (Hospitalization)
  Sender: FDA-Public Use
  Company Number: IL-ABBVIE-11P-082-0874743-00

PATIENT
  Sex: Male
  Weight: 54 kg

DRUGS (2)
  1. KALETRA [Suspect]
     Active Substance: LOPINAVIR\RITONAVIR
     Indication: HIV INFECTION
     Dates: start: 20110124, end: 20120327
  2. THEOTRIM SR [Concomitant]
     Indication: DYSPNOEA
     Dates: start: 201002

REACTIONS (4)
  - Lung disorder [Unknown]
  - Tachypnoea [Unknown]
  - Pneumonia [Unknown]
  - Dyspnoea [Unknown]
